FAERS Safety Report 13970582 (Version 2)
Quarter: 2019Q1

REPORT INFORMATION
  Report Type: Spontaneous
  Country: US (occurrence: US)
  Receive Date: 20170914
  Receipt Date: 20190204
  Transmission Date: 20190417
  Serious: No
  Sender: FDA-Public Use
  Company Number: US-PFIZER INC-2017393146

PATIENT
  Age: 77 Year
  Sex: Female

DRUGS (4)
  1. SOMAVERT [Suspect]
     Active Substance: PEGVISOMANT
     Dosage: 10 MG, DAILY
     Dates: start: 201306
  2. SOMAVERT [Suspect]
     Active Substance: PEGVISOMANT
     Dosage: 10 MG, UNK, [10 MG THREE TIMES A WEEK IN THE SAME YEAR]
     Dates: start: 2014
  3. SOMAVERT [Suspect]
     Active Substance: PEGVISOMANT
     Dosage: 10 UG, ALTERNATE DAY
     Dates: start: 2016
  4. SOMAVERT [Suspect]
     Active Substance: PEGVISOMANT
     Dosage: 10 MG, ALTERNATE DAY
     Dates: start: 201402

REACTIONS (4)
  - Rash [Recovered/Resolved]
  - Eosinophilia [Unknown]
  - Product use issue [Unknown]
  - Pruritus [Unknown]
